FAERS Safety Report 10687383 (Version 4)
Quarter: 2015Q1

REPORT INFORMATION
  Report Type: Spontaneous
  Country: JP (occurrence: JP)
  Receive Date: 20150102
  Receipt Date: 20150114
  Transmission Date: 20150720
  Serious: Yes (Hospitalization)
  Sender: FDA-Public Use
  Company Number: PHHY2014JP168251

PATIENT
  Age: 84 Year
  Sex: Female

DRUGS (4)
  1. LORNOXICAM [Suspect]
     Active Substance: LORNOXICAM
     Indication: HEADACHE
     Route: 048
  2. LOXOPROFEN [Suspect]
     Active Substance: LOXOPROFEN
     Indication: HEADACHE
     Route: 065
  3. VOLTAREN [Suspect]
     Active Substance: DICLOFENAC SODIUM
     Indication: HEADACHE
     Route: 048
  4. PARACETAMOL [Suspect]
     Active Substance: ACETAMINOPHEN
     Indication: HEADACHE
     Route: 065

REACTIONS (3)
  - Dementia [Unknown]
  - Memory impairment [Unknown]
  - Medication overuse headache [Recovered/Resolved]
